FAERS Safety Report 22520495 (Version 1)
Quarter: 2023Q2

REPORT INFORMATION
  Report Type: Report from Study
  Country: GB (occurrence: GB)
  Receive Date: 20230605
  Receipt Date: 20230605
  Transmission Date: 20230721
  Serious: Yes (Other)
  Sender: FDA-Public Use
  Company Number: GB-JNJFOC-20230509710

PATIENT
  Age: 6 Decade
  Sex: Male

DRUGS (2)
  1. STELARA [Suspect]
     Active Substance: USTEKINUMAB
     Indication: Crohn^s disease
     Route: 058
     Dates: start: 20210325
  2. STELARA [Suspect]
     Active Substance: USTEKINUMAB

REACTIONS (12)
  - Haematochezia [Unknown]
  - Uveitis [Not Recovered/Not Resolved]
  - Faeces discoloured [Unknown]
  - Pyrexia [Unknown]
  - Inappropriate schedule of product administration [Unknown]
  - Off label use [Unknown]
  - Epistaxis [Not Recovered/Not Resolved]
  - Inappropriate schedule of product administration [Unknown]
  - Diarrhoea [Unknown]
  - Ingrowing nail [Not Recovered/Not Resolved]
  - Sunburn [Unknown]
  - Pyrexia [Recovered/Resolved]
